FAERS Safety Report 20750137 (Version 1)
Quarter: 2022Q2

REPORT INFORMATION
  Report Type: Spontaneous
  Country: US (occurrence: None)
  Receive Date: 20220426
  Receipt Date: 20220426
  Transmission Date: 20220721
  Serious: Yes (Death)
  Sender: FDA-Public Use
  Company Number: None

PATIENT
  Age: 74 Year
  Sex: Female
  Weight: 52.8 kg

DRUGS (2)
  1. CARBOPLATIN [Suspect]
     Active Substance: CARBOPLATIN
     Dates: end: 20210813
  2. PACLITAXEL [Suspect]
     Active Substance: PACLITAXEL
     Dates: end: 20210813

REACTIONS (1)
  - Death [None]

NARRATIVE: CASE EVENT DATE: 20211014
